FAERS Safety Report 7465790-2 (Version None)
Quarter: 2011Q2

REPORT INFORMATION
  Report Type: 
  Country: None (occurrence: None)
  Receive Date: 20110509
  Receipt Date: 20110502
  Transmission Date: 20111010
  Serious: Yes (Other)
  Sender: FDA-Public Use
  Company Number: JP-SANOFI-AVENTIS-2011SA022540

PATIENT
  Sex: Male

DRUGS (4)
  1. INSULIN [Suspect]
  2. LANTUS [Suspect]
     Indication: TYPE 1 DIABETES MELLITUS
     Dosage: DOSE:8 UNIT(S)
     Route: 058
  3. INSULIN [Suspect]
  4. APIDRA [Suspect]
     Indication: TYPE 1 DIABETES MELLITUS
     Dosage: 3-3-4 UNITS/DAY
     Route: 058

REACTIONS (2)
  - HYPOGLYCAEMIA [None]
  - BLOOD GLUCOSE INCREASED [None]
